FAERS Safety Report 24828312 (Version 2)
Quarter: 2025Q1

REPORT INFORMATION
  Report Type: Spontaneous
  Country: US (occurrence: US)
  Receive Date: 20250109
  Receipt Date: 20250122
  Transmission Date: 20250409
  Serious: No
  Sender: GLAUKOS
  Company Number: US-GLK-002411

PATIENT

DRUGS (1)
  1. IDOSE TR [Suspect]
     Active Substance: TRAVOPROST
     Indication: Product used for unknown indication
     Dates: start: 20240905, end: 20240905

REACTIONS (2)
  - Iritis [Unknown]
  - Medical device removal [Unknown]
